FAERS Safety Report 6865222-9 (Version None)
Quarter: 2010Q3

REPORT INFORMATION
  Report Type: 
  Country: None (occurrence: None)
  Receive Date: 20100720
  Receipt Date: 20100707
  Transmission Date: 20110219
  Serious: Yes (Hospitalization, Other)
  Sender: FDA-Public Use
  Company Number: 7010270

PATIENT
  Age: 13 Year
  Sex: Female
  Weight: 47 kg

DRUGS (4)
  1. SAIZEN [Suspect]
     Indication: TURNER'S SYNDROME
     Dosage: 1.75 MG, 1 IN 1 D, SUBCUTANEOUS
     Route: 058
     Dates: start: 20091201, end: 20100611
  2. RISPERDAL [Concomitant]
  3. SEROQUEL [Concomitant]
  4. ESTRACE [Concomitant]

REACTIONS (5)
  - BLOOD BICARBONATE DECREASED [None]
  - BLOOD PH DECREASED [None]
  - DEHYDRATION [None]
  - PCO2 DECREASED [None]
  - TYPE 1 DIABETES MELLITUS [None]
